FAERS Safety Report 5151679-0 (Version None)
Quarter: 2006Q4

REPORT INFORMATION
  Report Type: 
  Country: None (occurrence: None)
  Receive Date: 20061115
  Receipt Date: 20061109
  Transmission Date: 20070319
  Serious: Yes (Life-Threatening)
  Sender: FDA-Public Use
  Company Number: IT-ROCHE-470651

PATIENT
  Age: 82 Year
  Sex: Female

DRUGS (2)
  1. ROCEPHIN [Suspect]
     Indication: BRONCHITIS
     Dosage: FORM REPORTED AS VIAL.
     Route: 030
     Dates: start: 20061103, end: 20061103
  2. SINTROM [Concomitant]
     Route: 048

REACTIONS (6)
  - BRONCHOSPASM [None]
  - ERYTHEMA [None]
  - HYPOTENSION [None]
  - OEDEMA [None]
  - PSYCHOMOTOR HYPERACTIVITY [None]
  - STRIDOR [None]
